FAERS Safety Report 24798040 (Version 2)
Quarter: 2025Q1

REPORT INFORMATION
  Report Type: Spontaneous
  Country: PL (occurrence: PL)
  Receive Date: 20250102
  Receipt Date: 20250311
  Transmission Date: 20250408
  Serious: Yes (Other)
  Sender: ROCHE
  Company Number: PL-ROCHE-10000170258

PATIENT
  Sex: Male

DRUGS (1)
  1. VABYSMO [Suspect]
     Active Substance: FARICIMAB-SVOA
     Indication: Central serous chorioretinopathy
     Route: 065

REACTIONS (2)
  - Off label use [Unknown]
  - Metamorphopsia [Unknown]
